FAERS Safety Report 13197796 (Version 1)
Quarter: 2017Q1

REPORT INFORMATION
  Report Type: Spontaneous
  Country: US (occurrence: US)
  Receive Date: 20170208
  Receipt Date: 20170208
  Transmission Date: 20170428
  Serious: No
  Sender: FDA-Public Use
  Company Number: US-ELI_LILLY_AND_COMPANY-US201702000929

PATIENT
  Sex: Female

DRUGS (6)
  1. HUMULIN N [Suspect]
     Active Substance: INSULIN HUMAN
     Indication: TYPE 2 DIABETES MELLITUS
     Dosage: 28 U, EACH MORNING
     Route: 065
     Dates: start: 2010
  2. HUMULIN N [Suspect]
     Active Substance: INSULIN HUMAN
     Dosage: 28 U, EACH MORNING
     Route: 065
  3. METFORMIN [Concomitant]
     Active Substance: METFORMIN HYDROCHLORIDE
  4. HUMULIN N [Suspect]
     Active Substance: INSULIN HUMAN
     Dosage: 24 U, EACH EVENING
     Route: 065
     Dates: start: 2010
  5. GLIPIZDE [Concomitant]
     Active Substance: GLIPIZIDE
  6. HUMULIN N [Suspect]
     Active Substance: INSULIN HUMAN
     Dosage: 24 U, EACH EVENING
     Route: 065

REACTIONS (3)
  - Arthritis [Unknown]
  - Disorientation [Unknown]
  - Blood glucose decreased [Unknown]
